FAERS Safety Report 12424849 (Version 1)
Quarter: 2016Q2

REPORT INFORMATION
  Report Type: Spontaneous
  Country: DE (occurrence: DE)
  Receive Date: 20160601
  Receipt Date: 20160601
  Transmission Date: 20160815
  Serious: Yes (Hospitalization)
  Sender: FDA-Public Use
  Company Number: DE-PFIZER INC-2016279029

PATIENT
  Age: 67 Year
  Sex: Female

DRUGS (10)
  1. VALPROAT [Concomitant]
     Active Substance: VALPROATE SODIUM
     Dosage: 1300 MG, 1X/DAY
     Route: 048
     Dates: start: 2009
  2. RAMIPRIL. [Concomitant]
     Active Substance: RAMIPRIL
     Dosage: 2.5 MG, 1X/DAY
     Route: 048
  3. PANTOPRAZOLE [Concomitant]
     Active Substance: PANTOPRAZOLE SODIUM
     Dosage: 20 MG, 1X/DAY
     Route: 048
     Dates: start: 20160216
  4. TAVOR (LORAZEPAM) [Suspect]
     Active Substance: LORAZEPAM
     Indication: SCHIZOAFFECTIVE DISORDER
     Dosage: 2.5 MG, 1X/DAY
     Route: 048
     Dates: start: 20160125
  5. RISPERIDONE JANSSEN-CILAG GMBH [Suspect]
     Active Substance: RISPERIDONE
     Indication: SCHIZOAFFECTIVE DISORDER
     Dosage: 4 MG, 1X/DAY
     Route: 048
     Dates: start: 20160125, end: 20160218
  6. ASPIRIN. [Concomitant]
     Active Substance: ASPIRIN
     Dosage: 100 MG, 1X/DAY
     Route: 048
  7. TRANSTEC [Concomitant]
     Active Substance: BUPRENORPHINE
     Dosage: 35 UG/H
     Route: 062
  8. PERAZINE [Suspect]
     Active Substance: PERAZINE
     Indication: SCHIZOAFFECTIVE DISORDER
     Dosage: 200 MG, 1X/DAY
     Route: 048
     Dates: start: 20160215, end: 20160217
  9. BIFITERAL [Concomitant]
     Active Substance: LACTULOSE
     Dosage: 60 ML, UNK
  10. ZOPICLON [Concomitant]
     Active Substance: ZOPICLONE
     Dosage: 7.5 MG, 1X/DAY
     Route: 048

REACTIONS (5)
  - Altered state of consciousness [Recovered/Resolved]
  - Fall [Recovering/Resolving]
  - Parkinsonism [Recovered/Resolved]
  - Somnolence [Recovered/Resolved]
  - Sedation [Recovered/Resolved]

NARRATIVE: CASE EVENT DATE: 20160215
